FAERS Safety Report 8167272-1 (Version None)
Quarter: 2012Q1

REPORT INFORMATION
  Report Type: 
  Country: None (occurrence: None)
  Receive Date: 20120227
  Receipt Date: 20120217
  Transmission Date: 20120608
  Serious: Yes (Hospitalization)
  Sender: FDA-Public Use
  Company Number: US-ABBOTT-12P-163-0906578-00

PATIENT
  Sex: Male

DRUGS (7)
  1. HUMIRA [Suspect]
     Indication: CROHN'S DISEASE
     Dates: start: 20101101
  2. ERGOCALCIFEROL [Concomitant]
     Indication: PRODUCT USED FOR UNKNOWN INDICATION
  3. FOLIC ACID [Concomitant]
     Indication: PRODUCT USED FOR UNKNOWN INDICATION
  4. MULTI-VITAMIN [Concomitant]
     Indication: PRODUCT USED FOR UNKNOWN INDICATION
  5. CALCIUM CARBONATE [Concomitant]
     Indication: PRODUCT USED FOR UNKNOWN INDICATION
  6. FERROUS SULFATE TAB [Concomitant]
     Indication: PRODUCT USED FOR UNKNOWN INDICATION
  7. NEXIUM [Concomitant]
     Indication: PRODUCT USED FOR UNKNOWN INDICATION

REACTIONS (17)
  - ABDOMINAL PAIN [None]
  - FATIGUE [None]
  - CROHN'S DISEASE [None]
  - VOMITING [None]
  - COLITIS [None]
  - DIARRHOEA HAEMORRHAGIC [None]
  - DEHYDRATION [None]
  - ANAEMIA [None]
  - BACTERIAL INFECTION [None]
  - OCCULT BLOOD POSITIVE [None]
  - PYREXIA [None]
  - DIZZINESS [None]
  - PERIRECTAL ABSCESS [None]
  - HAEMORRHOIDS [None]
  - HAEMOGLOBIN DECREASED [None]
  - ATELECTASIS [None]
  - PLEURAL EFFUSION [None]
